FAERS Safety Report 25837550 (Version 7)
Quarter: 2025Q4

REPORT INFORMATION
  Report Type: Report from Study
  Country: US (occurrence: US)
  Receive Date: 20250923
  Receipt Date: 20251202
  Transmission Date: 20260117
  Serious: Yes (Other)
  Sender: MALLINCKRODT
  Company Number: US-MALLINCKRODT-MNK202505789

PATIENT
  Age: 68 Year
  Sex: Female

DRUGS (10)
  1. CORTICOTROPIN [Suspect]
     Active Substance: CORTICOTROPIN
     Indication: Corneal disorder
     Dosage: 80 UNITS
     Dates: start: 20240613
  2. CORTICOTROPIN [Suspect]
     Active Substance: CORTICOTROPIN
     Indication: Pemphigoid
     Dosage: 80 UNITS
     Route: 058
     Dates: start: 202502, end: 2025
  3. CORTICOTROPIN [Suspect]
     Active Substance: CORTICOTROPIN
     Dosage: 40 UNITS
     Route: 058
     Dates: start: 2025
  4. VALIUM [Concomitant]
     Active Substance: DIAZEPAM
     Dosage: 2
  5. MYCOPHENOLIC ACID [Concomitant]
     Active Substance: MYCOPHENOLIC ACID
     Dosage: UNK
  6. XDEMVY [Concomitant]
     Active Substance: LOTILANER
     Dosage: UNK
  7. LOTEPREDNOL [Concomitant]
     Active Substance: LOTEPREDNOL
  8. LOTEPREDNOL [Concomitant]
     Active Substance: LOTEPREDNOL
  9. BRIMONIDINE [Concomitant]
     Active Substance: BRIMONIDINE TARTRATE
  10. COSOPT [Concomitant]
     Active Substance: DORZOLAMIDE HYDROCHLORIDE\TIMOLOL MALEATE
     Dosage: UNK

REACTIONS (11)
  - Eye laser surgery [Unknown]
  - Nasal congestion [Unknown]
  - Faeces discoloured [Unknown]
  - Eye pain [Unknown]
  - Ocular hypertension [Unknown]
  - Ocular hyperaemia [Unknown]
  - Injection site bruising [Recovered/Resolved]
  - Injection site pain [Unknown]
  - Diarrhoea [Recovered/Resolved]
  - Headache [Recovered/Resolved]
  - Blood potassium decreased [Unknown]
